FAERS Safety Report 8902364 (Version 2)
Quarter: 2012Q4

REPORT INFORMATION
  Report Type: Report from Study
  Country: CH (occurrence: CH)
  Receive Date: 20121112
  Receipt Date: 20121207
  Transmission Date: 20130627
  Serious: Yes (Hospitalization)
  Sender: FDA-Public Use
  Company Number: CH-ROCHE-1154125

PATIENT
  Age: 55 Year
  Sex: Female

DRUGS (5)
  1. BEVACIZUMAB [Suspect]
     Indication: BREAST CANCER METASTATIC
     Dosage: date of Last dose prior to SAE: 11/Jan/2012
     Route: 042
     Dates: start: 20120111
  2. BEVACIZUMAB [Suspect]
     Dosage: Date of last dose prior to sae : 15/Nov/2012
     Route: 042
     Dates: start: 20120111
  3. CYCLOPHOSPHAMIDE [Suspect]
     Indication: BREAST CANCER METASTATIC
     Dosage: date of last dose prior to sae : 03/Dec/2012
     Route: 048
     Dates: start: 20121113
  4. CAPECITABINE [Suspect]
     Indication: BREAST CANCER METASTATIC
     Dosage: Date of last dose prior to sae  :03/Dec/2012
     Route: 048
     Dates: start: 20121113
  5. OXYCONTIN [Concomitant]
     Route: 048
     Dates: start: 20121117

REACTIONS (4)
  - Gastrointestinal disorder [Unknown]
  - Nausea [Unknown]
  - Vomiting [Unknown]
  - Nausea [Unknown]
